FAERS Safety Report 11533832 (Version 1)
Quarter: 2015Q3

REPORT INFORMATION
  Report Type: Spontaneous
  Country: US (occurrence: US)
  Receive Date: 20150922
  Receipt Date: 20150922
  Transmission Date: 20151125
  Serious: Yes (Other)
  Sender: FDA-Public Use
  Company Number: US-HOSPIRA-3010205

PATIENT
  Sex: Female

DRUGS (8)
  1. METHADONE [Suspect]
     Active Substance: METHADONE HYDROCHLORIDE
     Indication: PAIN
  2. VICODIN [Suspect]
     Active Substance: ACETAMINOPHEN\HYDROCODONE BITARTRATE
     Indication: PAIN
  3. FELDENE [Suspect]
     Active Substance: PIROXICAM
     Indication: TRIGGER FINGER
  4. DEMEROL [Suspect]
     Active Substance: MEPERIDINE HYDROCHLORIDE
     Indication: PAIN
  5. FELDENE FLASH [Suspect]
     Active Substance: PIROXICAM
     Indication: PERIPHERAL SWELLING
  6. FELDENE FLASH [Suspect]
     Active Substance: PIROXICAM
     Indication: TRIGGER FINGER
  7. PERCODAN [Suspect]
     Active Substance: ASPIRIN\OXYCODONE HYDROCHLORIDE
     Indication: PAIN
  8. FELDENE [Suspect]
     Active Substance: PIROXICAM
     Indication: PERIPHERAL SWELLING

REACTIONS (5)
  - Thrombosis [Unknown]
  - Feeling abnormal [Unknown]
  - Dysarthria [Unknown]
  - Transient ischaemic attack [None]
  - Nausea [Unknown]

NARRATIVE: CASE EVENT DATE: 201506
